FAERS Safety Report 4431355-X (Version None)
Quarter: 2004Q3

REPORT INFORMATION
  Report Type: 
  Country: None (occurrence: None)
  Receive Date: 20040817
  Receipt Date: 20040811
  Transmission Date: 20050211
  Serious: Yes (Hospitalization)
  Sender: FDA-Public Use
  Company Number: 2004227836ES

PATIENT
  Sex: Female

DRUGS (1)
  1. SOMAVERT [Suspect]
     Indication: ACROMEGALY
     Dosage: QD, SUBCUTANEOUS
     Route: 058
     Dates: start: 20040101, end: 20040701

REACTIONS (2)
  - DRUG TOXICITY [None]
  - HEPATITIS CHOLESTATIC [None]
